FAERS Safety Report 4469027-8 (Version None)
Quarter: 2005Q1

REPORT INFORMATION
  Report Type: 
  Country: None (occurrence: None)
  Receive Date: 20041005
  Receipt Date: 20040924
  Transmission Date: 20050727
  Serious: Yes (Death)
  Sender: FDA-Public Use
  Company Number: BRO-007770

PATIENT
  Age: 81 Year
  Sex: Male

DRUGS (4)
  1. IOPAMIDOL-300 [Suspect]
     Indication: ANGIOGRAM
     Dosage: 100 ML   IV      A FEW MINS
     Route: 042
     Dates: start: 20040915, end: 20040915
  2. IOPAMIDOL-300 [Suspect]
     Indication: CORONARY ANGIOPLASTY
     Dosage: 100 ML   IV      A FEW MINS
     Route: 042
     Dates: start: 20040915, end: 20040915
  3. NITROGLYCERIN ^A.L.^, (GLYCERYL TRINITRATE) [Concomitant]
  4. MORPHINE [Concomitant]

REACTIONS (4)
  - ANAPHYLACTIC REACTION [None]
  - BRADYCARDIA [None]
  - HYPOTENSION [None]
  - RASH [None]
